FAERS Safety Report 8340563 (Version 8)
Quarter: 2015Q3

REPORT INFORMATION
  Report Type: Report from Study
  Country: BR (occurrence: BR)
  Receive Date: 20120117
  Receipt Date: 20150903
  Transmission Date: 20151125
  Serious: Yes (Hospitalization, Other)
  Sender: FDA-Public Use
  Company Number: BR-ROCHE-1030183

PATIENT
  Age: 60 Year
  Sex: Female
  Weight: 83 kg

DRUGS (11)
  1. TYLEX (BRAZIL) [Concomitant]
  2. TRAMAL [Concomitant]
     Active Substance: TRAMADOL
     Indication: PAIN
  3. BUSCOPAN [Concomitant]
     Active Substance: BUTYLSCOPOLAMINE BROMIDE
  4. ULTRACET [Concomitant]
     Active Substance: ACETAMINOPHEN\TRAMADOL HYDROCHLORIDE
     Indication: PAIN
  5. LOSARTAN. [Concomitant]
     Active Substance: LOSARTAN
  6. METHOTREXATE [Concomitant]
     Active Substance: METHOTREXATE
     Route: 065
  7. RIVOTRIL [Concomitant]
     Active Substance: CLONAZEPAM
  8. TYLENOL [Concomitant]
     Active Substance: ACETAMINOPHEN
  9. FRONTAL [Concomitant]
     Active Substance: ALPRAZOLAM
     Indication: PAIN
  10. MABTHERA [Suspect]
     Active Substance: RITUXIMAB
     Indication: RHEUMATOID ARTHRITIS
     Route: 042
     Dates: start: 20090831
  11. TRAMADOL. [Concomitant]
     Active Substance: TRAMADOL

REACTIONS (28)
  - Cough [Not Recovered/Not Resolved]
  - Formication [Recovered/Resolved]
  - Pain in extremity [Not Recovered/Not Resolved]
  - Rheumatoid arthritis [Not Recovered/Not Resolved]
  - Abdominal hernia [Recovered/Resolved]
  - Gastrooesophageal reflux disease [Not Recovered/Not Resolved]
  - Alopecia [Not Recovered/Not Resolved]
  - Nausea [Unknown]
  - Hypokalaemia [Recovered/Resolved]
  - Skin cancer [Recovered/Resolved]
  - Feeding disorder [Unknown]
  - Discomfort [Recovered/Resolved]
  - Pyrexia [Recovered/Resolved]
  - Spinal disorder [Unknown]
  - Diarrhoea [Unknown]
  - Drug ineffective [Unknown]
  - Weight decreased [Unknown]
  - Pulmonary mass [Not Recovered/Not Resolved]
  - Vomiting [Unknown]
  - Weight increased [Recovered/Resolved]
  - Peripheral swelling [Recovered/Resolved]
  - Joint swelling [Recovered/Resolved]
  - Dizziness [Recovered/Resolved]
  - Ulcer [Recovered/Resolved]
  - Tooth injury [Recovered/Resolved]
  - Malaise [Unknown]
  - Gait disturbance [Recovered/Resolved]
  - Pain [Not Recovered/Not Resolved]

NARRATIVE: CASE EVENT DATE: 201107
